FAERS Safety Report 24012838 (Version 1)
Quarter: 2024Q2

REPORT INFORMATION
  Report Type: Report from Study
  Country: BG (occurrence: BG)
  Receive Date: 20240626
  Receipt Date: 20240626
  Transmission Date: 20240716
  Serious: Yes (Death, Hospitalization)
  Sender: FDA-Public Use
  Company Number: BG-AMGEN-BGRNI2024124940

PATIENT
  Age: 61 Year
  Sex: Male
  Weight: 114 kg

DRUGS (8)
  1. BEVACIZUMAB [Suspect]
     Active Substance: BEVACIZUMAB
     Indication: Hepatocellular carcinoma
     Dosage: 1710    MILLIGRAM
     Route: 065
     Dates: start: 20220403
  2. ATEZOLIZUMAB [Suspect]
     Active Substance: ATEZOLIZUMAB
     Indication: Hepatocellular carcinoma
     Dosage: 1200 MILLIGRAM, Q3WK, (INTRAVENOUS DRIP) DOSE LAST STUDY DRUG ADMIN PRIOR AE/SAE 1200 MGSTART DATE O
     Route: 040
     Dates: start: 20220403
  3. PANTOPRAZOLE [Concomitant]
     Active Substance: PANTOPRAZOLE
     Dosage: UNK UNK, QD
  4. SPIRONOLACTONE [Concomitant]
     Active Substance: SPIRONOLACTONE
     Dosage: UNK UNK, BID
  5. LEVOTHYROXINE [Concomitant]
     Active Substance: LEVOTHYROXINE\LEVOTHYROXINE SODIUM
     Dosage: UNK UNK, QD
     Dates: start: 20220909
  6. CARBAMAZEPINE [Concomitant]
     Active Substance: CARBAMAZEPINE
     Dosage: UNK UNK, AS NECESSARY
     Dates: start: 20230418, end: 20230419
  7. ADEMETIONINE [Concomitant]
     Active Substance: ADEMETIONINE
     Dosage: UNK UNK, BID
     Dates: start: 20230418, end: 20230419
  8. PROPRANOLOL [Concomitant]
     Active Substance: PROPRANOLOL HYDROCHLORIDE
     Dosage: AS NECESSARY

REACTIONS (2)
  - Oesophageal varices haemorrhage [Not Recovered/Not Resolved]
  - Brain stem ischaemia [Fatal]

NARRATIVE: CASE EVENT DATE: 20230418
